FAERS Safety Report 22048282 (Version 1)
Quarter: 2023Q1

REPORT INFORMATION
  Report Type: Other
  Country: DE (occurrence: DE)
  Receive Date: 20230301
  Receipt Date: 20230301
  Transmission Date: 20230417
  Serious: Yes (Congenital Anomaly)
  Sender: FDA-Public Use
  Company Number: DE-MACLEODS PHARMACEUTICALS US LTD-MAC2023039948

PATIENT

DRUGS (5)
  1. ESCITALOPRAM [Suspect]
     Active Substance: ESCITALOPRAM OXALATE
     Indication: Product used for unknown indication
     Dosage: 5 MILLIGRAM, BID, 1 {TRIMESTER}0. - 36.1. GESTATIONAL WEEK
     Route: 064
     Dates: start: 20210208, end: 20211019
  2. TOZINAMERAN [Concomitant]
     Active Substance: TOZINAMERAN
     Indication: Product used for unknown indication
     Dosage: UNK, , FIRST COVID-19 VACCINATION, 2 {TRIMESTER}, 25.1. - 25.1. GESTATIONAL WEEK
     Route: 064
     Dates: start: 20210803, end: 20210803
  3. TOZINAMERAN [Concomitant]
     Active Substance: TOZINAMERAN
     Dosage: UNK, 3 {TRIMESTER}, 27.2. - 27.2. GESTATIONAL WEEK
     Route: 064
     Dates: start: 20210818, end: 20210818
  4. ALBUTEROL [Concomitant]
     Active Substance: ALBUTEROL
     Indication: Product used for unknown indication
     Dosage: UNK, TRIMESTER: UNKNOWN TRIMESTER, IF NEEDED
     Route: 064
  5. BOOSTRIX [Concomitant]
     Active Substance: TETANUS TOXOID, REDUCED DIPHTHERIA TOXOID AND ACELLULAR PERTUSSIS VACCINE, ADSORBED ANTIGENS
     Indication: Product used for unknown indication
     Dosage: UNK, 3 {TRIMESTER}, 31. - 32. GESTATIONAL WEEK
     Route: 064

REACTIONS (3)
  - Premature baby [Unknown]
  - Craniosynostosis [Unknown]
  - Foetal exposure during pregnancy [Unknown]
